FAERS Safety Report 13285117 (Version 1)
Quarter: 2017Q1

REPORT INFORMATION
  Report Type: Spontaneous
  Country: US (occurrence: US)
  Receive Date: 20170301
  Receipt Date: 20170301
  Transmission Date: 20170428
  Serious: Yes (Hospitalization)
  Sender: FDA-Public Use
  Company Number: None

PATIENT
  Age: 83 Year
  Sex: Female

DRUGS (9)
  1. CALCIUM D [Concomitant]
     Active Substance: CALCIUM\VITAMIN D
  2. OMEPRAZOLE. [Concomitant]
     Active Substance: OMEPRAZOLE
  3. LEVOTHYROXIN [Concomitant]
     Active Substance: LEVOTHYROXINE
  4. SUTENT [Suspect]
     Active Substance: SUNITINIB MALATE
     Indication: SOFT TISSUE SARCOMA
     Dosage: 1 CAPSULE DAILY ORAL
     Route: 048
     Dates: start: 20170128
  5. ASPIRIN. [Concomitant]
     Active Substance: ASPIRIN
  6. B COMPLEX/C [Concomitant]
  7. OCUVITE [Concomitant]
     Active Substance: VITAMINS
  8. DILTIAZEM. [Concomitant]
     Active Substance: DILTIAZEM
  9. LATANOPROST. [Concomitant]
     Active Substance: LATANOPROST

REACTIONS (2)
  - Decreased appetite [None]
  - Nausea [None]
